FAERS Safety Report 26093055 (Version 1)
Quarter: 2025Q4

REPORT INFORMATION
  Report Type: Spontaneous
  Country: AU (occurrence: AU)
  Receive Date: 20251126
  Receipt Date: 20251126
  Transmission Date: 20260117
  Serious: Yes (Other)
  Sender: PURDUE
  Company Number: AU-NAPPMUNDI-GBR-2019-0069017

PATIENT
  Age: 81 Year
  Sex: Female

DRUGS (7)
  1. BUPRENORPHINE [Suspect]
     Active Substance: BUPRENORPHINE
     Indication: Product used for unknown indication
     Route: 062
  2. BUPRENORPHINE HYDROCHLORIDE [Suspect]
     Active Substance: BUPRENORPHINE HYDROCHLORIDE
     Indication: Product used for unknown indication
     Dosage: UNK
     Route: 065
  3. LYRICA [Suspect]
     Active Substance: PREGABALIN
     Indication: Sciatica
     Dosage: UNK
     Route: 065
     Dates: start: 20190114, end: 20190115
  4. IBUPROFEN [Concomitant]
     Active Substance: IBUPROFEN
     Indication: Back pain
     Dosage: UNK
     Route: 048
     Dates: start: 20190114
  5. IBUPROFEN [Concomitant]
     Active Substance: IBUPROFEN
     Indication: Sciatica
  6. ACETAMINOPHEN [Concomitant]
     Active Substance: ACETAMINOPHEN
     Indication: Sciatica
     Dosage: UNK
     Route: 048
     Dates: start: 20190114
  7. ACETAMINOPHEN [Concomitant]
     Active Substance: ACETAMINOPHEN
     Indication: Back pain

REACTIONS (3)
  - Feeling abnormal [Unknown]
  - Confusional state [Recovered/Resolved]
  - Nausea [Unknown]

NARRATIVE: CASE EVENT DATE: 20190114
